FAERS Safety Report 7416957-0 (Version None)
Quarter: 2011Q2

REPORT INFORMATION
  Report Type: 
  Country: None (occurrence: None)
  Receive Date: 20110412
  Receipt Date: 20110412
  Transmission Date: 20111010
  Serious: Yes (Hospitalization)
  Sender: FDA-Public Use
  Company Number: None

PATIENT
  Sex: Male

DRUGS (1)
  1. HYDROCODONE BITARTRATE AND ACETAMINOPHEN [Suspect]
     Dosage: ONE TABLET Q 4 HR PRN ORAL
     Route: 048
     Dates: start: 20110328, end: 20110329

REACTIONS (3)
  - PALPITATIONS [None]
  - VOMITING [None]
  - NAUSEA [None]
